FAERS Safety Report 8854791 (Version 2)
Quarter: 2012Q4

REPORT INFORMATION
  Report Type: 
  Country: NL (occurrence: NL)
  Receive Date: 20121023
  Receipt Date: 20121025
  Transmission Date: 20130627
  Serious: Yes (Other)
  Sender: FDA-Public Use
  Company Number: PHHY2012NL094601

PATIENT
  Age: 55 Year
  Sex: Female

DRUGS (3)
  1. ZOMETA [Suspect]
     Indication: LUNG CANCER METASTATIC
     Dosage: 4 mg/100 ml solution once every 28 days
  2. ZOMETA [Suspect]
     Dosage: 4 mg/100 ml solution once every 28 days
     Dates: start: 20120529
  3. ZOMETA [Suspect]
     Dosage: 4 mg/100 ml solution once every 28 days
     Dates: start: 20120820

REACTIONS (2)
  - Terminal state [Unknown]
  - Influenza [Recovered/Resolved]
